FAERS Safety Report 6112351-3 (Version None)
Quarter: 2009Q1

REPORT INFORMATION
  Report Type: 
  Country: None (occurrence: None)
  Receive Date: 20090311
  Receipt Date: 20090311
  Transmission Date: 20090719
  Serious: Yes (Life-Threatening)
  Sender: FDA-Public Use
  Company Number: None

PATIENT
  Age: 64 Year
  Sex: Male
  Weight: 108.8633 kg

DRUGS (2)
  1. METOPROLOL SUCCINATE EXTENDED RELEASE [Suspect]
     Indication: ATRIAL FIBRILLATION
     Dosage: 25 MG (1) PER DAY
     Dates: start: 20080901
  2. METOPROLOL SUCCINATE EXTENDED RELEASE [Suspect]
     Indication: ATRIAL FIBRILLATION
     Dosage: 25 MG (1) PER DAY
     Dates: start: 20080920

REACTIONS (6)
  - BLOOD PRESSURE FLUCTUATION [None]
  - DIZZINESS [None]
  - HEART RATE DECREASED [None]
  - MALAISE [None]
  - OEDEMA PERIPHERAL [None]
  - PRODUCT QUALITY ISSUE [None]
